FAERS Safety Report 9060573 (Version 5)
Quarter: 2014Q1

REPORT INFORMATION
  Report Type: Spontaneous
  Country: US (occurrence: US)
  Receive Date: 20130212
  Receipt Date: 20140127
  Transmission Date: 20141002
  Serious: Yes (Other)
  Sender: FDA-Public Use
  Company Number: US-009507513-1302USA004868

PATIENT
  Sex: Female

DRUGS (4)
  1. FOSAMAX [Suspect]
     Indication: OSTEOPENIA
     Dosage: 10 MG, QD
     Route: 048
     Dates: end: 2006
  2. FOSAMAX [Suspect]
     Dosage: 70 MG, QW
     Route: 048
     Dates: end: 2006
  3. ALENDRONATE SODIUM [Suspect]
     Dosage: UNK
     Dates: start: 1995, end: 2011
  4. BONIVA [Suspect]
     Indication: OSTEOPENIA
     Dosage: 150 MG, QM
     Dates: start: 2006, end: 2011

REACTIONS (29)
  - Femur fracture [Unknown]
  - Intramedullary rod insertion [Unknown]
  - Orthopaedic procedure [Unknown]
  - Thyroidectomy [Unknown]
  - Sleep paralysis [Unknown]
  - Post procedural complication [Unknown]
  - Device failure [Unknown]
  - Endodontic procedure [Unknown]
  - Endodontic procedure [Unknown]
  - Endodontic procedure [Unknown]
  - Endodontic procedure [Unknown]
  - Apicectomy [Unknown]
  - Endodontic procedure [Unknown]
  - Adverse event [Unknown]
  - Tremor [Unknown]
  - Restless legs syndrome [Unknown]
  - Goitre [Unknown]
  - Weight increased [Unknown]
  - Post procedural hypothyroidism [Unknown]
  - Body height decreased [Unknown]
  - Anxiety [Unknown]
  - Arthritis [Unknown]
  - Mitral valve prolapse [Unknown]
  - Foot operation [Unknown]
  - Plantar fasciitis [Unknown]
  - Thyroid neoplasm [Unknown]
  - Fall [Unknown]
  - Gastrooesophageal reflux disease [Unknown]
  - Alopecia areata [Unknown]
